FAERS Safety Report 10839224 (Version 1)
Quarter: 2015Q1

REPORT INFORMATION
  Report Type: Spontaneous
  Country: US (occurrence: US)
  Receive Date: 20150220
  Receipt Date: 20150220
  Transmission Date: 20150721
  Serious: No
  Sender: FDA-Public Use
  Company Number: US-ABBVIE-14P-163-1252776-00

PATIENT
  Sex: Male
  Weight: 107.14 kg

DRUGS (4)
  1. UNKNOWN ANTIDEPRESSANT [Concomitant]
     Indication: DEPRESSION
  2. HUMIRA [Suspect]
     Active Substance: ADALIMUMAB
     Indication: PSORIASIS
     Dates: start: 201306
  3. VITAMINS NOS [Concomitant]
     Active Substance: VITAMINS
     Indication: PRODUCT USED FOR UNKNOWN INDICATION
  4. UNKNOWN WATER PILL [Concomitant]
     Active Substance: UNSPECIFIED INGREDIENT
     Indication: PRODUCT USED FOR UNKNOWN INDICATION

REACTIONS (2)
  - Psoriasis [Not Recovered/Not Resolved]
  - Wound haemorrhage [Not Recovered/Not Resolved]

NARRATIVE: CASE EVENT DATE: 2013
